FAERS Safety Report 20807114 (Version 3)
Quarter: 2024Q3

REPORT INFORMATION
  Report Type: Report from Study
  Country: US (occurrence: US)
  Receive Date: 20220510
  Receipt Date: 20240925
  Transmission Date: 20241017
  Serious: No
  Sender: GLAXOSMITHKLINE
  Company Number: US-GLAXOSMITHKLINE-US2022AMR075596

PATIENT
  Sex: Female

DRUGS (1)
  1. NIRAPARIB [Suspect]
     Active Substance: NIRAPARIB
     Indication: Ovarian cancer
     Dosage: 200 MG, QD
     Dates: start: 20220422

REACTIONS (4)
  - Dizziness [Not Recovered/Not Resolved]
  - Hypokinesia [Unknown]
  - Mastectomy [Unknown]
  - Decreased activity [Not Recovered/Not Resolved]
